FAERS Safety Report 11746820 (Version 1)
Quarter: 2015Q4

REPORT INFORMATION
  Report Type: Spontaneous
  Country: US (occurrence: US)
  Receive Date: 20151117
  Receipt Date: 20151117
  Transmission Date: 20160304
  Serious: Yes (Hospitalization)
  Sender: FDA-Public Use
  Company Number: US-ELI_LILLY_AND_COMPANY-US201511003778

PATIENT
  Age: 23 Year
  Sex: Female

DRUGS (3)
  1. PROZAC [Suspect]
     Active Substance: FLUOXETINE HYDROCHLORIDE
     Indication: PRODUCT USED FOR UNKNOWN INDICATION
     Dosage: 20 MG, QD
     Route: 048
     Dates: start: 20010301
  2. PRENATAL                           /00231801/ [Concomitant]
     Dosage: UNK, QD
     Route: 048
  3. COMPAZINE [Concomitant]
     Active Substance: PROCHLORPERAZINE MALEATE
     Indication: HYPEREMESIS GRAVIDARUM
     Dosage: UNK, PRN
     Route: 042

REACTIONS (10)
  - Hypokalaemia [Unknown]
  - Dehydration [Unknown]
  - Haemoglobin decreased [Unknown]
  - Blood sodium decreased [Unknown]
  - Upper gastrointestinal haemorrhage [Unknown]
  - Dystonia [Recovering/Resolving]
  - Maternal exposure during pregnancy [Unknown]
  - Hyperemesis gravidarum [Unknown]
  - Blood magnesium decreased [Unknown]
  - Blood chloride decreased [Unknown]

NARRATIVE: CASE EVENT DATE: 20010301
